FAERS Safety Report 7524631-5 (Version None)
Quarter: 2011Q2

REPORT INFORMATION
  Report Type: 
  Country: None (occurrence: None)
  Receive Date: 20110606
  Receipt Date: 20110525
  Transmission Date: 20111010
  Serious: Yes (Death, Hospitalization)
  Sender: FDA-Public Use
  Company Number: JP-JNJFOC-20110512344

PATIENT
  Age: 87 Year
  Sex: Male

DRUGS (6)
  1. ASPIRIN [Concomitant]
     Indication: PROPHYLAXIS
     Route: 048
     Dates: start: 20080405, end: 20110430
  2. PURSENNID [Concomitant]
     Indication: CONSTIPATION
     Dosage: DOSE: 2 DF
     Route: 048
     Dates: start: 20080105, end: 20110430
  3. URIEF [Concomitant]
     Indication: DYSURIA
     Route: 048
     Dates: start: 20080105, end: 20110430
  4. GALANTAMINE HYDROBROMIDE [Suspect]
     Indication: DEMENTIA ALZHEIMER'S TYPE
     Route: 048
     Dates: start: 20110407, end: 20110430
  5. NORVASC [Concomitant]
     Indication: BLOOD PRESSURE DECREASED
     Route: 048
     Dates: start: 20080105, end: 20110430
  6. KAMAG G [Concomitant]
     Indication: CONSTIPATION
     Route: 048
     Dates: start: 20080105, end: 20110430

REACTIONS (1)
  - MARASMUS [None]
